FAERS Safety Report 4314582-1 (Version None)
Quarter: 2004Q1

REPORT INFORMATION
  Report Type: 
  Country: None (occurrence: None)
  Receive Date: 20040308
  Receipt Date: 20040224
  Transmission Date: 20041129
  Serious: Yes (Other)
  Sender: FDA-Public Use
  Company Number: FR-JNJFOC-20040300074

PATIENT
  Age: 58 Year
  Sex: Female

DRUGS (3)
  1. PREPULSID (CISAPRIDE) TABLETS [Suspect]
     Indication: IMPAIRED GASTRIC EMPTYING
     Dosage: 10 MG, 4 IN 1 DAY, ORAL
     Route: 048
     Dates: start: 20040123, end: 20040202
  2. OGAST (LANSOPRAZOLE) [Concomitant]
  3. LEVOTHYROXINE SODIUM [Concomitant]

REACTIONS (5)
  - CONFUSIONAL STATE [None]
  - DIARRHOEA [None]
  - HEADACHE [None]
  - POLLAKIURIA [None]
  - VERTIGO [None]
